FAERS Safety Report 5759823-9 (Version None)
Quarter: 2008Q2

REPORT INFORMATION
  Report Type: 
  Country: None (occurrence: None)
  Receive Date: 20080605
  Receipt Date: 20080527
  Transmission Date: 20081010
  Serious: Yes (Other)
  Sender: FDA-Public Use
  Company Number: GB-TEVA-172188ISR

PATIENT
  Age: 51 Year
  Sex: Male

DRUGS (2)
  1. LORAZEPAM [Suspect]
     Indication: ANXIETY
     Route: 048
     Dates: start: 20060101
  2. CLOZAPINE [Suspect]
     Indication: SCHIZOPHRENIA
     Route: 048
     Dates: start: 20020101

REACTIONS (4)
  - HAEMOGLOBIN DECREASED [None]
  - MALAISE [None]
  - OESOPHAGEAL CARCINOMA [None]
  - PLATELET COUNT INCREASED [None]
